FAERS Safety Report 4828572-3 (Version None)
Quarter: 2005Q4

REPORT INFORMATION
  Report Type: 
  Country: None (occurrence: None)
  Receive Date: 20051115
  Receipt Date: 20051109
  Transmission Date: 20060501
  Serious: Yes (Hospitalization)
  Sender: FDA-Public Use
  Company Number: FR-BRISTOL-MYERS SQUIBB COMPANY-13176177

PATIENT
  Age: 52 Year
  Sex: Female

DRUGS (5)
  1. COUMADIN [Suspect]
     Indication: EMBOLISM
     Route: 048
     Dates: end: 20041201
  2. COUMADIN [Suspect]
     Indication: VENOUS THROMBOSIS
     Route: 048
     Dates: end: 20041201
  3. PROZAC [Concomitant]
     Dosage: DOSE UNIT = UG/D
  4. MOPRAL [Concomitant]
  5. VASTAREL [Concomitant]
     Dosage: DOSE UNIT = UG

REACTIONS (3)
  - COLITIS ULCERATIVE [None]
  - ENTEROCOLITIS HAEMORRHAGIC [None]
  - GASTROINTESTINAL HAEMORRHAGE [None]
